FAERS Safety Report 11873126 (Version 2)
Quarter: 2016Q1

REPORT INFORMATION
  Report Type: Spontaneous
  Country: US (occurrence: US)
  Receive Date: 20151228
  Receipt Date: 20160108
  Transmission Date: 20160526
  Serious: Yes (Other)
  Sender: FDA-Public Use
  Company Number: US-SUNOVION-2015SUN001320

PATIENT
  Sex: Female

DRUGS (6)
  1. APTIOM [Suspect]
     Active Substance: ESLICARBAZEPINE ACETATE
     Dosage: 2100 MG, QD
     Route: 048
  2. APTIOM [Suspect]
     Active Substance: ESLICARBAZEPINE ACETATE
     Dosage: 2400 MG, QD
     Route: 048
  3. VIMPAT [Concomitant]
     Active Substance: LACOSAMIDE
     Dosage: 200 MG, BID
     Route: 065
  4. FYCOMPA [Concomitant]
     Active Substance: PERAMPANEL
     Dosage: 12 MG, HS
     Route: 065
  5. APTIOM [Suspect]
     Active Substance: ESLICARBAZEPINE ACETATE
     Dosage: 1800 MG, QD
     Route: 048
     Dates: start: 20160106
  6. APTIOM [Suspect]
     Active Substance: ESLICARBAZEPINE ACETATE
     Dosage: 600 MG, QD
     Route: 048
     Dates: start: 201504

REACTIONS (7)
  - Somnolence [Unknown]
  - Off label use [Unknown]
  - Drug ineffective [Unknown]
  - Overdose [Unknown]
  - Seizure [Not Recovered/Not Resolved]
  - Feeling drunk [Unknown]
  - Gait disturbance [Unknown]
